FAERS Safety Report 20055188 (Version 1)
Quarter: 2021Q4

REPORT INFORMATION
  Report Type: Spontaneous
  Country: US (occurrence: None)
  Receive Date: 20211110
  Receipt Date: 20211110
  Transmission Date: 20220303
  Serious: No
  Sender: FDA-Public Use
  Company Number: None

PATIENT
  Sex: Female
  Weight: 75.60 kg

DRUGS (13)
  1. VERZENIO [Suspect]
     Active Substance: ABEMACICLIB
     Indication: Breast cancer
     Dosage: FREQUENCY : TWICE A DAY;?
     Route: 048
  2. ONDANSETRON [Concomitant]
     Active Substance: ONDANSETRON
  3. OXYCODONE [Concomitant]
     Active Substance: OXYCODONE
  4. EPINEPHRINE [Concomitant]
     Active Substance: EPINEPHRINE
  5. ADDERALL XR [Concomitant]
     Active Substance: AMPHETAMINE ASPARTATE\AMPHETAMINE SULFATE\DEXTROAMPHETAMINE SACCHARATE\DEXTROAMPHETAMINE SULFATE
  6. ESCITALOPRAM [Concomitant]
     Active Substance: ESCITALOPRAM OXALATE
  7. LORAZEPAM [Concomitant]
     Active Substance: LORAZEPAM
  8. MORPHINE [Concomitant]
     Active Substance: MORPHINE
  9. LYRICA [Concomitant]
     Active Substance: PREGABALIN
  10. VIACTIV [Concomitant]
  11. VITAMIN D [Concomitant]
     Active Substance: VITAMIN D NOS
  12. IBUPROFEN [Concomitant]
     Active Substance: IBUPROFEN
  13. IMODIUM A-D [Concomitant]
     Active Substance: LOPERAMIDE HYDROCHLORIDE

REACTIONS (1)
  - Disease progression [None]
